FAERS Safety Report 7801754-4 (Version None)
Quarter: 2011Q4

REPORT INFORMATION
  Report Type: 
  Country: None (occurrence: None)
  Receive Date: 20111007
  Receipt Date: 20110924
  Transmission Date: 20120403
  Serious: Yes (Other)
  Sender: FDA-Public Use
  Company Number: US-ELI_LILLY_AND_COMPANY-US201109007824

PATIENT
  Sex: Female

DRUGS (2)
  1. COUMADIN [Concomitant]
  2. FORTEO [Suspect]

REACTIONS (5)
  - SPINAL OPERATION [None]
  - HAEMORRHAGE INTRACRANIAL [None]
  - MEMORY IMPAIRMENT [None]
  - THROMBOSIS [None]
  - BRAIN OPERATION [None]
